FAERS Safety Report 18798541 (Version 1)
Quarter: 2021Q1

REPORT INFORMATION
  Report Type: Spontaneous
  Country: US (occurrence: US)
  Receive Date: 20210127
  Receipt Date: 20210127
  Transmission Date: 20210419
  Serious: Yes (Hospitalization)
  Sender: FDA-Public Use
  Company Number: None

PATIENT
  Age: 23 Year
  Sex: Female
  Weight: 111.6 kg

DRUGS (1)
  1. BAMLANIVIMAB. [Suspect]
     Active Substance: BAMLANIVIMAB
     Indication: COVID-19
     Route: 041
     Dates: start: 20210125, end: 20210125

REACTIONS (8)
  - Condition aggravated [None]
  - Heart rate increased [None]
  - Body temperature increased [None]
  - Headache [None]
  - Dizziness [None]
  - Infusion related reaction [None]
  - Retching [None]
  - Cough [None]

NARRATIVE: CASE EVENT DATE: 20210125
